FAERS Safety Report 20637882 (Version 1)
Quarter: 2022Q1

REPORT INFORMATION
  Report Type: Report from Study
  Country: CA (occurrence: CA)
  Receive Date: 20220325
  Receipt Date: 20220325
  Transmission Date: 20220423
  Serious: Yes (Other)
  Sender: FDA-Public Use
  Company Number: CA-NOVARTISPH-NVSC2022CA064692

PATIENT
  Sex: Male

DRUGS (1)
  1. HYRIMOZ [Suspect]
     Active Substance: ADALIMUMAB-ADAZ
     Indication: Crohn^s disease
     Dosage: 40 MG, Q2W (EVERY SECOND SATURDAY)
     Route: 058
     Dates: start: 20210809

REACTIONS (10)
  - Uveitis [Unknown]
  - Frequent bowel movements [Unknown]
  - Malaise [Unknown]
  - Arthralgia [Recovered/Resolved]
  - Eye pain [Unknown]
  - Aphthous ulcer [Recovered/Resolved]
  - Neck mass [Unknown]
  - Abdominal pain [Recovered/Resolved]
  - Diarrhoea [Unknown]
  - Feeling abnormal [Unknown]
